FAERS Safety Report 14702846 (Version 1)
Quarter: 2018Q2

REPORT INFORMATION
  Report Type: Spontaneous
  Country: JP (occurrence: JP)
  Receive Date: 20180402
  Receipt Date: 20180402
  Transmission Date: 20180711
  Serious: Yes (Death, Hospitalization, Other)
  Sender: FDA-Public Use
  Company Number: JP-CIPLA LTD.-2018JP13513

PATIENT

DRUGS (17)
  1. DOCETAXEL. [Suspect]
     Active Substance: DOCETAXEL
     Indication: METASTASES TO LUNG
     Dosage: UNK, 3 CYCLES (CYCLICAL)
     Route: 065
  2. METRONIDAZOLE. [Concomitant]
     Active Substance: METRONIDAZOLE
     Indication: SKIN ULCER
     Dosage: UNK
     Route: 061
  3. PACLITAXEL. [Suspect]
     Active Substance: PACLITAXEL
     Indication: NEOPLASM RECURRENCE
     Dosage: UNK, ONE CYCLE AS SECOND-LINE THERAPY
     Route: 065
  4. PACLITAXEL. [Suspect]
     Active Substance: PACLITAXEL
     Indication: METASTASES TO BONE
  5. GIMERACIL [Suspect]
     Active Substance: GIMERACIL
     Indication: METASTASES TO LUNG
     Dosage: 3 CYCLES, UNK
     Route: 065
  6. PACLITAXEL. [Suspect]
     Active Substance: PACLITAXEL
     Indication: CHEMOTHERAPY
     Dosage: 12 CYCLES, UNK
     Route: 065
  7. CYCLOPHOSPHAMIDE. [Suspect]
     Active Substance: CYCLOPHOSPHAMIDE
     Indication: CHEMOTHERAPY
     Dosage: UNK, FOUR CYCLES
     Route: 065
  8. TEGAFUR [Suspect]
     Active Substance: TEGAFUR
     Indication: METASTASES TO LUNG
     Dosage: 3 CYCLES, UNK
     Route: 065
  9. FLUOROURACIL. [Suspect]
     Active Substance: FLUOROURACIL
     Indication: CHEMOTHERAPY
     Dosage: UNK, FOUR CYCLES
     Route: 065
  10. ERIBULIN MESILATE [Suspect]
     Active Substance: ERIBULIN
     Indication: METASTASES TO BONE
  11. BEVACIZUMAB. [Suspect]
     Active Substance: BEVACIZUMAB
     Indication: METASTASES TO BONE
  12. OTERACIL POTASSIUM [Suspect]
     Active Substance: OTERACIL POTASSIUM
     Indication: METASTASES TO LUNG
     Dosage: 3 CYCLES, UNK
     Route: 065
  13. GEMCITABINE [Suspect]
     Active Substance: GEMCITABINE\GEMCITABINE HYDROCHLORIDE
     Indication: METASTASES TO LUNG
     Dosage: UNK, CYCLICAL, 3 CYCLES
     Route: 065
  14. IRINOTECAN [Suspect]
     Active Substance: IRINOTECAN
     Indication: NEOPLASM RECURRENCE
     Dosage: 100 MG/M2, ADMINISTERED ON DAY 1, 8 AND 15, 35 DAYS PER CYCLE
     Route: 065
  15. EPIRUBICIN [Suspect]
     Active Substance: EPIRUBICIN
     Indication: CHEMOTHERAPY
     Dosage: UNK, FOUR CYCLES
     Route: 065
  16. ERIBULIN MESILATE [Suspect]
     Active Substance: ERIBULIN
     Indication: NEOPLASM RECURRENCE
     Dosage: 2 CYCLES AS FIRST-LINE THERAPY
     Route: 065
  17. BEVACIZUMAB. [Suspect]
     Active Substance: BEVACIZUMAB
     Indication: NEOPLASM RECURRENCE
     Dosage: UNK, ONE CYCLE AS SECOND-LINE THERAPY
     Route: 065

REACTIONS (7)
  - Cellulitis [Unknown]
  - Drug ineffective [Unknown]
  - Malignant neoplasm progression [Unknown]
  - Metastases to lung [Unknown]
  - Neoplasm recurrence [Recovering/Resolving]
  - Death [Fatal]
  - Metastases to bone [Unknown]
